FAERS Safety Report 7552485-X (Version None)
Quarter: 2011Q2

REPORT INFORMATION
  Report Type: 
  Country: None (occurrence: None)
  Receive Date: 20110609
  Receipt Date: 20110602
  Transmission Date: 20111010
  Serious: Yes (Other)
  Sender: FDA-Public Use
  Company Number: CL-315-2011

PATIENT
  Age: 74 Year
  Sex: Female

DRUGS (1)
  1. AMIODARONE HCL [Suspect]
     Indication: ATRIAL FIBRILLATION
     Dosage: 200MG ONCE A DAY ORAL
     Route: 048

REACTIONS (6)
  - INTERNATIONAL NORMALISED RATIO INCREASED [None]
  - ASPARTATE AMINOTRANSFERASE INCREASED [None]
  - ASTHENIA [None]
  - HEPATOTOXICITY [None]
  - BREATH SOUNDS ABNORMAL [None]
  - ASCITES [None]
